FAERS Safety Report 8978115 (Version 1)
Quarter: 2012Q4

REPORT INFORMATION
  Report Type: 
  Country: US (occurrence: US)
  Receive Date: 20121220
  Receipt Date: 20121220
  Transmission Date: 20130627
  Serious: Yes (Hospitalization)
  Sender: FDA-Public Use
  Company Number: US-B.I. PHARMACEUTICALS,INC./RIDGEFIELD-2012-BI-03275BP

PATIENT
  Age: 82 Year
  Sex: Female
  Weight: 73 kg

DRUGS (4)
  1. SPIRIVA [Suspect]
     Dosage: 18 mcg
     Route: 055
     Dates: start: 20121128
  2. COMBIVENT [Suspect]
     Dosage: 4 puf
     Dates: start: 20121128
  3. ALBUTEROL NEBULIZER [Concomitant]
     Indication: ASTHMA
     Route: 055
     Dates: start: 2011
  4. LISINOPRIL [Concomitant]
     Indication: HYPERTENSION
     Dosage: 12.5 mg
     Dates: start: 2011

REACTIONS (1)
  - Pneumonia [Recovered/Resolved]
